FAERS Safety Report 11824407 (Version 1)
Quarter: 2015Q4

REPORT INFORMATION
  Report Type: Spontaneous
  Country: DE (occurrence: DE)
  Receive Date: 20151210
  Receipt Date: 20151210
  Transmission Date: 20160305
  Serious: Yes (Other)
  Sender: FDA-Public Use
  Company Number: DE-ELI_LILLY_AND_COMPANY-DE201512000532

PATIENT
  Age: 80 Year
  Sex: Female

DRUGS (7)
  1. LIPROLOG LISPRO [Suspect]
     Active Substance: INSULIN LISPRO
     Dosage: 6 IU, QD
     Route: 058
     Dates: start: 201510
  2. PLAVIX [Suspect]
     Active Substance: CLOPIDOGREL BISULFATE
     Indication: CARDIAC PACEMAKER INSERTION
     Dosage: UNK, UNKNOWN
     Route: 065
     Dates: start: 2001
  3. LIPROLOG LISPRO [Suspect]
     Active Substance: INSULIN LISPRO
     Indication: DIABETES MELLITUS
     Dosage: 2 IU, QD
     Route: 058
     Dates: start: 201510
  4. EBRANTIL                           /00631801/ [Suspect]
     Active Substance: URAPIDIL
     Indication: HYPERTENSION
     Dosage: UNK, UNKNOWN
     Route: 065
  5. LIPROLOG LISPRO [Suspect]
     Active Substance: INSULIN LISPRO
     Dosage: 4 IU, QD
     Route: 058
     Dates: start: 201510
  6. RAMIPRIL. [Suspect]
     Active Substance: RAMIPRIL
     Indication: HYPERTENSION
     Dosage: 5 MG, UNKNOWN
     Route: 065
  7. BERLINSULIN H BASAL [Concomitant]
     Active Substance: INSULIN HUMAN
     Indication: DIABETES MELLITUS
     Dosage: 6 IU, QD
     Route: 065
     Dates: start: 2005

REACTIONS (8)
  - C-reactive protein increased [Not Recovered/Not Resolved]
  - Alanine aminotransferase increased [Not Recovered/Not Resolved]
  - Pyrexia [Not Recovered/Not Resolved]
  - Malaise [Not Recovered/Not Resolved]
  - Blood creatinine increased [Not Recovered/Not Resolved]
  - White blood cells urine positive [Not Recovered/Not Resolved]
  - Proteinuria [Not Recovered/Not Resolved]
  - Nitrite urine present [Not Recovered/Not Resolved]

NARRATIVE: CASE EVENT DATE: 201511
